FAERS Safety Report 4702310-7 (Version None)
Quarter: 2005Q2

REPORT INFORMATION
  Report Type: 
  Country: None (occurrence: None)
  Receive Date: 20050614
  Receipt Date: 20050531
  Transmission Date: 20051028
  Serious: Yes (Other)
  Sender: FDA-Public Use
  Company Number: 2005BH000067

PATIENT
  Age: 41 Year

DRUGS (1)
  1. GAMMAGARD S/D [Suspect]

REACTIONS (1)
  - MYOCARDIAL INFARCTION [None]
